FAERS Safety Report 18585340 (Version 1)
Quarter: 2020Q4

REPORT INFORMATION
  Report Type: Spontaneous
  Country: US (occurrence: US)
  Receive Date: 20201204
  Receipt Date: 20201204
  Transmission Date: 20210114
  Serious: No
  Sender: FDA-Public Use
  Company Number: None

PATIENT
  Age: 59 Year
  Sex: Female
  Weight: 75.2 kg

DRUGS (18)
  1. VERZENIO [Suspect]
     Active Substance: ABEMACICLIB
     Indication: BREAST CANCER FEMALE
     Route: 048
     Dates: start: 20200918
  2. VITAMIN E [Concomitant]
     Active Substance: .ALPHA.-TOCOPHEROL
  3. CLINDAMYCIN 300MG [Concomitant]
     Active Substance: CLINDAMYCIN PHOSPHATE
  4. VITAMIN K2 [Concomitant]
     Active Substance: MENAQUINONE 6
  5. IBUPROFEN 600MG [Concomitant]
     Active Substance: IBUPROFEN
  6. CETIRIZINE [Concomitant]
     Active Substance: CETIRIZINE HYDROCHLORIDE
  7. VITAMIN B12 [Concomitant]
     Active Substance: CYANOCOBALAMIN
  8. EPINEPHRINE 0.3MG/0.3ML [Concomitant]
     Active Substance: EPINEPHRINE
  9. LETROZOLE 2.5MG [Concomitant]
     Active Substance: LETROZOLE
  10. MULTIVITAMIN [Concomitant]
     Active Substance: VITAMINS
  11. DOCYCYCLINE HYCLATE 100MG [Concomitant]
  12. CYANOCOBALAMIN 5000MCG [Concomitant]
  13. GENTAMICIN 0.1% [Concomitant]
  14. NICOTINE STEP 1 21MG/24HR [Concomitant]
  15. NORTRIPTYLINE 50MG [Concomitant]
     Active Substance: NORTRIPTYLINE
  16. BENADRYL CREAM [Concomitant]
     Active Substance: DIPHENHYDRAMINE\ZINC ACETATE
  17. DOXYLAMINE-DM 12.5-30MG [Concomitant]
  18. CALCIUM [Concomitant]
     Active Substance: CALCIUM

REACTIONS (3)
  - Blister [None]
  - Platelet count decreased [None]
  - Haemoglobin decreased [None]

NARRATIVE: CASE EVENT DATE: 20201204
